FAERS Safety Report 10149529 (Version 1)
Quarter: 2014Q2

REPORT INFORMATION
  Report Type: Spontaneous
  Country: US (occurrence: US)
  Receive Date: 20140502
  Receipt Date: 20140502
  Transmission Date: 20141212
  Serious: Yes (Death)
  Sender: FDA-Public Use
  Company Number: US-PFIZER INC-2014119141

PATIENT
  Sex: 0

DRUGS (1)
  1. VFEND [Suspect]
     Dosage: UNK

REACTIONS (3)
  - Leukaemia [Fatal]
  - Cardio-respiratory arrest [Fatal]
  - Non-small cell lung cancer [Fatal]
